FAERS Safety Report 10442344 (Version 2)
Quarter: 2014Q4

REPORT INFORMATION
  Report Type: Report from Study
  Country: US (occurrence: US)
  Receive Date: 20140909
  Receipt Date: 20141124
  Transmission Date: 20150528
  Serious: Yes (Death, Hospitalization)
  Sender: FDA-Public Use
  Company Number: US-SA-2014SA122722

PATIENT
  Age: 64 Year
  Sex: Male
  Weight: 110.7 kg

DRUGS (7)
  1. ENOXAPARIN SODIUM. [Concomitant]
     Active Substance: ENOXAPARIN SODIUM
     Indication: PULMONARY EMBOLISM
     Dates: start: 20061205
  2. THERAPEUTIC RADIOPHARMACEUTICALS [Suspect]
     Active Substance: RADIATION THERAPY
     Indication: SQUAMOUS CELL CARCINOMA OF HEAD AND NECK
     Dosage: RECEIVED DOSE 2 GY ONCE PER DAY.
     Route: 065
     Dates: start: 20061009, end: 20061130
  3. CETUXIMAB [Suspect]
     Active Substance: CETUXIMAB
     Indication: SQUAMOUS CELL CARCINOMA OF HEAD AND NECK
     Dosage: ON DAY 1
     Route: 042
     Dates: start: 20061009
  4. SULFAMETHOXAZOLE/TRIMETHOPRIM [Concomitant]
     Active Substance: SULFAMETHOXAZOLE\TRIMETHOPRIM
     Indication: CELLULITIS
     Dosage: DOUBLE STRENGTH
     Dates: start: 20061205
  5. I.V. SOLUTIONS [Concomitant]
     Route: 042
     Dates: start: 20061205
  6. CETUXIMAB [Suspect]
     Active Substance: CETUXIMAB
     Indication: SQUAMOUS CELL CARCINOMA OF HEAD AND NECK
     Route: 042
     Dates: start: 200610, end: 20061030
  7. DOCETAXEL. [Suspect]
     Active Substance: DOCETAXEL
     Indication: SQUAMOUS CELL CARCINOMA OF HEAD AND NECK
     Dosage: RECEIVED INFUSION ONCE PER WEEK.
     Route: 042
     Dates: start: 20061009, end: 20061030

REACTIONS (6)
  - Heart rate increased [Fatal]
  - Chest pain [Fatal]
  - Myocardial infarction [Fatal]
  - Dyspnoea [Fatal]
  - Oxygen saturation decreased [Fatal]
  - Pneumonia [Fatal]

NARRATIVE: CASE EVENT DATE: 20061205
